FAERS Safety Report 13097377 (Version 2)
Quarter: 2017Q1

REPORT INFORMATION
  Report Type: Spontaneous
  Country: US (occurrence: US)
  Receive Date: 20170109
  Receipt Date: 20170111
  Transmission Date: 20170428
  Serious: Yes (Other)
  Sender: FDA-Public Use
  Company Number: US-BAYER-2017-004073

PATIENT
  Age: 18 Year
  Sex: Female

DRUGS (1)
  1. SKYLA [Suspect]
     Active Substance: LEVONORGESTREL
     Dosage: 14 MCG/24HR, CONT
     Route: 015
     Dates: start: 201603

REACTIONS (6)
  - Genital haemorrhage [None]
  - Discomfort [None]
  - Adverse event [None]
  - Device use error [None]
  - Pain [None]
  - Device issue [None]

NARRATIVE: CASE EVENT DATE: 2016
